FAERS Safety Report 9634949 (Version 1)
Quarter: 2013Q4

REPORT INFORMATION
  Report Type: Report from Study
  Country: US (occurrence: US)
  Receive Date: 20131021
  Receipt Date: 20131021
  Transmission Date: 20140711
  Serious: Yes (Death)
  Sender: FDA-Public Use
  Company Number: US-ROCHE-1289375

PATIENT
  Age: 63 Year
  Sex: Male

DRUGS (16)
  1. AVASTIN [Suspect]
     Indication: PROSTATE CANCER
     Route: 065
     Dates: start: 20090616
  2. AVASTIN [Suspect]
     Route: 065
     Dates: start: 20090708
  3. AVASTIN [Suspect]
     Route: 065
     Dates: start: 20090730
  4. AVASTIN [Suspect]
     Route: 065
     Dates: start: 20090819
  5. AVASTIN [Suspect]
     Route: 065
     Dates: start: 20090909
  6. AVASTIN [Suspect]
     Route: 065
     Dates: start: 20090930
  7. AVASTIN [Suspect]
     Route: 065
     Dates: start: 20091021
  8. AVASTIN [Suspect]
     Route: 065
     Dates: start: 20091111
  9. IXEMPRA [Concomitant]
     Dosage: 75MG IN 250CC NS OVER 3.5 HOURS
     Route: 065
  10. MITOXANTRONE [Concomitant]
  11. ALOXI [Concomitant]
  12. DECADRON [Concomitant]
  13. BENADRYL (UNITED STATES) [Concomitant]
     Dosage: IN 502 CC NS
     Route: 042
  14. PREDNISONE [Concomitant]
  15. CIMETIDINE [Concomitant]
     Dosage: IN 501 CC NS
     Route: 042
  16. HEPARIN [Concomitant]

REACTIONS (5)
  - Death [Fatal]
  - Back pain [Unknown]
  - Fatigue [Unknown]
  - Protein urine present [Recovered/Resolved]
  - Off label use [Unknown]
